FAERS Safety Report 14881268 (Version 1)
Quarter: 2018Q2

REPORT INFORMATION
  Report Type: Spontaneous
  Country: DE (occurrence: DE)
  Receive Date: 20180511
  Receipt Date: 20180511
  Transmission Date: 20180711
  Serious: Yes (Hospitalization)
  Sender: FDA-Public Use
  Company Number: PHHY2018DE006709

PATIENT
  Sex: Male

DRUGS (1)
  1. EZETIMIBE. [Suspect]
     Active Substance: EZETIMIBE
     Indication: HYPERLIPIDAEMIA
     Dosage: 10 MG, UNK
     Route: 048

REACTIONS (3)
  - Swollen tongue [Recovering/Resolving]
  - Eye swelling [Recovering/Resolving]
  - Malaise [Recovering/Resolving]
